FAERS Safety Report 9771064 (Version 1)
Quarter: 2013Q4

REPORT INFORMATION
  Report Type: Spontaneous
  Country: US (occurrence: US)
  Receive Date: 20131218
  Receipt Date: 20131218
  Transmission Date: 20140711
  Serious: No
  Sender: FDA-Public Use
  Company Number: US-009507513-1310USA008354

PATIENT
  Age: 67 Year
  Sex: Female

DRUGS (2)
  1. DULERA [Suspect]
     Indication: CHRONIC OBSTRUCTIVE PULMONARY DISEASE
     Dosage: 200 MCG/5 MCG, 2 INHALATIONS TWICE DAILY
     Route: 055
     Dates: start: 2011
  2. ATENOLOL [Concomitant]

REACTIONS (2)
  - Blood pressure increased [Unknown]
  - Weight increased [Unknown]
